FAERS Safety Report 9173284 (Version 2)
Quarter: 2013Q1

REPORT INFORMATION
  Report Type: Spontaneous
  Country: DE (occurrence: None)
  Receive Date: 20130325
  Receipt Date: 20130326
  Transmission Date: 20140127
  Serious: Yes (Other)
  Sender: FDA-Public Use
  Company Number: GER/GER/13/0028493

PATIENT
  Age: 48 Year
  Sex: Female
  Weight: 68 kg

DRUGS (1)
  1. VENLAFAXINE [Suspect]
     Indication: DEPRESSION
     Dosage: 150MG, 1D, ORAL
     Route: 048
     Dates: start: 2005, end: 2012

REACTIONS (3)
  - Dependence [None]
  - Serotonin syndrome [None]
  - Drug withdrawal syndrome [None]
